FAERS Safety Report 18260963 (Version 1)
Quarter: 2020Q3

REPORT INFORMATION
  Report Type: Spontaneous
  Country: FR (occurrence: FR)
  Receive Date: 20200914
  Receipt Date: 20200914
  Transmission Date: 20201103
  Serious: Yes (Hospitalization, Other)
  Sender: FDA-Public Use
  Company Number: FR-AUROBINDO-AUR-APL-2020-047351

PATIENT
  Age: 75 Year
  Sex: Male
  Weight: 71 kg

DRUGS (3)
  1. AMOXICILLIN;CLAVULANIC ACID [Interacting]
     Active Substance: AMOXICILLIN\CLAVULANIC ACID
     Indication: PNEUMONIA ASPIRATION
     Dosage: 6 GRAM, ONCE A DAY
     Route: 041
     Dates: start: 20200821, end: 20200824
  2. PANTOPRAZOLE SODIUM. [Suspect]
     Active Substance: PANTOPRAZOLE SODIUM
     Indication: HELICOBACTER GASTRITIS
     Dosage: 40 MILLIGRAM, ONCE A DAY
     Route: 041
     Dates: start: 20200815, end: 20200824
  3. METHOTREXATE MYLAN [Interacting]
     Active Substance: METHOTREXATE SODIUM
     Indication: B-CELL LYMPHOMA
     Dosage: 3000 MILLIGRAM/SQ. METER, TOTAL
     Route: 041
     Dates: start: 20200823, end: 20200823

REACTIONS (3)
  - Acute kidney injury [Recovered/Resolved]
  - Overdose [Recovered/Resolved]
  - Drug interaction [Recovered/Resolved]

NARRATIVE: CASE EVENT DATE: 20200823
